FAERS Safety Report 9168615 (Version 1)
Quarter: 2013Q1

REPORT INFORMATION
  Report Type: Spontaneous
  Country: US (occurrence: None)
  Receive Date: 20130314
  Receipt Date: 20130314
  Transmission Date: 20140127
  Serious: Yes (Hospitalization, Other)
  Sender: FDA-Public Use
  Company Number: None

PATIENT
  Age: 54 Year
  Sex: Female

DRUGS (1)
  1. BOTOX [Suspect]
     Indication: NECK PAIN
     Dosage: 300 UNITS INTO MULTIPLE SITES TO BILATERAL IM ROUTE
     Route: 030
     Dates: start: 20100317

REACTIONS (4)
  - Vertigo [None]
  - Gastrointestinal disorder [None]
  - Calcinosis [None]
  - Inner ear disorder [None]
